FAERS Safety Report 4861104-2 (Version None)
Quarter: 2005Q4

REPORT INFORMATION
  Report Type: 
  Country: None (occurrence: None)
  Receive Date: 20051220
  Receipt Date: 20051214
  Transmission Date: 20060501
  Serious: Yes (Hospitalization)
  Sender: FDA-Public Use
  Company Number: FR-GLAXOSMITHKLINE-B0404038A

PATIENT
  Age: 38 Year
  Sex: Female

DRUGS (8)
  1. AUGMENTIN '125' [Suspect]
     Indication: ABSCESS
     Dosage: 1G THREE TIMES PER DAY
     Route: 042
     Dates: start: 20051031, end: 20051101
  2. PERFALGAN [Suspect]
     Indication: ABSCESS
     Dosage: 1G THREE TIMES PER DAY
     Route: 042
     Dates: start: 20051031, end: 20051104
  3. TOPALGIC (FRANCE) [Concomitant]
     Dates: start: 20051031, end: 20051104
  4. PRIMPERAN INJ [Concomitant]
     Dates: start: 20051031, end: 20051104
  5. DEBRIDAT [Concomitant]
     Dates: start: 20051031, end: 20051104
  6. ACUPAN [Concomitant]
     Dates: start: 20051031, end: 20051104
  7. NEXIUM [Concomitant]
     Dates: start: 20051031, end: 20051104
  8. SPASFON [Concomitant]
     Dates: start: 20051031, end: 20051104

REACTIONS (3)
  - ACUTE GENERALISED EXANTHEMATOUS PUSTULOSIS [None]
  - EOSINOPHILIA [None]
  - PYREXIA [None]
